FAERS Safety Report 16920717 (Version 2)
Quarter: 2019Q4

REPORT INFORMATION
  Report Type: Report from Study
  Country: MX (occurrence: MX)
  Receive Date: 20191015
  Receipt Date: 20191104
  Transmission Date: 20200122
  Serious: Yes (Hospitalization, Other)
  Sender: FDA-Public Use
  Company Number: PHHY2019MX228184

PATIENT
  Age: 35 Year
  Sex: Female
  Weight: 87.5 kg

DRUGS (4)
  1. ABEMACICLIB [Suspect]
     Active Substance: ABEMACICLIB
     Indication: BREAST CANCER
     Dosage: 150 MG, BID
     Route: 048
     Dates: start: 20190423, end: 20190919
  2. LETROZOLE. [Suspect]
     Active Substance: LETROZOLE
     Indication: BREAST CANCER
     Dosage: 2.5 MG, QD
     Route: 048
     Dates: start: 20190423, end: 20190919
  3. ENOXAPARIN [Suspect]
     Active Substance: ENOXAPARIN
     Indication: PROPHYLAXIS
     Dosage: 40 MG
     Route: 042
  4. ZOLEDRONIC ACID. [Concomitant]
     Active Substance: ZOLEDRONIC ACID
     Indication: PROPHYLAXIS
     Dosage: UNK
     Route: 065
     Dates: start: 20190722

REACTIONS (11)
  - Tricuspid valve incompetence [Unknown]
  - Lymphocyte count increased [Unknown]
  - Pulmonary hypertension [Not Recovered/Not Resolved]
  - Diastolic dysfunction [Unknown]
  - Pneumonitis [Not Recovered/Not Resolved]
  - Tachycardia [Unknown]
  - Bronchial disorder [Unknown]
  - Neutrophil count decreased [Unknown]
  - Interstitial lung disease [Unknown]
  - Pulmonary embolism [Unknown]
  - Hypoxia [Unknown]

NARRATIVE: CASE EVENT DATE: 20190919
